FAERS Safety Report 5892117-X (Version None)
Quarter: 2008Q3

REPORT INFORMATION
  Report Type: 
  Country: None (occurrence: None)
  Receive Date: 20080922
  Receipt Date: 20080918
  Transmission Date: 20090109
  Serious: Yes (Death, Hospitalization)
  Sender: FDA-Public Use
  Company Number: JP-B.I. PHARMACEUTICALS,INC./RIDGEFIELD-2008-BP-11845NB

PATIENT
  Sex: Male
  Weight: 56 kg

DRUGS (4)
  1. BI-SIFROL TABLETS [Suspect]
     Indication: PARKINSON'S DISEASE
     Dosage: .5MG
     Route: 048
     Dates: start: 20080710, end: 20080727
  2. EC-DOPARL (LEVODOPA_BENSERAZIDE HYDROCHLORIDE) [Concomitant]
     Indication: PARKINSON'S DISEASE
     Dosage: 200MG
     Route: 048
     Dates: start: 20080619, end: 20080621
  3. PANTOSIN [Concomitant]
     Indication: CONSTIPATION
     Dosage: 2G
     Route: 048
     Dates: start: 20070901
  4. MAGNESIUM OXIDE [Concomitant]
     Indication: CONSTIPATION
     Dosage: 1G
     Route: 048
     Dates: start: 20070901

REACTIONS (4)
  - CONFUSIONAL STATE [None]
  - DELIRIUM [None]
  - FALL [None]
  - TRAUMATIC SHOCK [None]
